FAERS Safety Report 7699563-2 (Version None)
Quarter: 2011Q3

REPORT INFORMATION
  Report Type: 
  Country: None (occurrence: None)
  Receive Date: 20110822
  Receipt Date: 20110816
  Transmission Date: 20111222
  Serious: Yes (Life-Threatening, Hospitalization)
  Sender: FDA-Public Use
  Company Number: DE-BRISTOL-MYERS SQUIBB COMPANY-15213051

PATIENT
  Age: 79 Year
  Sex: Female

DRUGS (1)
  1. ABATACEPT [Suspect]
     Dosage: TIME POINT 2=16APR09 RESTARTED ON OCT2009
     Dates: start: 20081030

REACTIONS (6)
  - GASTROENTERITIS [None]
  - BACK PAIN [None]
  - SPINAL FRACTURE [None]
  - HYSTERECTOMY [None]
  - DEHYDRATION [None]
  - RENAL FAILURE ACUTE [None]
